FAERS Safety Report 17077252 (Version 10)
Quarter: 2020Q4

REPORT INFORMATION
  Report Type: Report from Study
  Country: NL (occurrence: NL)
  Receive Date: 20191126
  Receipt Date: 20201210
  Transmission Date: 20210113
  Serious: Yes (Hospitalization, Other)
  Sender: FDA-Public Use
  Company Number: NL-AMGEN-NLDSL2019194188

PATIENT
  Age: 59 Year
  Sex: Female

DRUGS (28)
  1. CAPECITABINE. [Suspect]
     Active Substance: CAPECITABINE
     Indication: PRODUCT USED FOR UNKNOWN INDICATION
     Dosage: 500 MILLIGRAM, 2D4T.
     Route: 065
     Dates: start: 20200626
  2. CALCIUM CARBONATE;COLECALCIFEROL [Concomitant]
     Active Substance: CALCIUM CARBONATE\CHOLECALCIFEROL
     Dosage: 1,25G/880IE (500MG CA) 1XD 1T
  3. LISINOPRIL/HYDROCHLOORTHIAZIDE [Concomitant]
     Active Substance: HYDROCHLOROTHIAZIDE\LISINOPRIL
     Dosage: 20/12,5MG 1XD 1T
  4. DOLOPHINE [Concomitant]
     Active Substance: METHADONE HYDROCHLORIDE
     Dosage: 5 MILLIGRAM, QD, 3XD 1,5T
  5. PREGABALIN. [Concomitant]
     Active Substance: PREGABALIN
     Dosage: 150 MILLIGRAM 2D1C.
  6. OXYCODON [Concomitant]
     Active Substance: OXYCODONE
     Dosage: 5 MILLIGRAM
  7. METOCLOPRAMIDE. [Concomitant]
     Active Substance: METOCLOPRAMIDE
     Dosage: 10 MILLIGRAM, QD, 3XD 1T
  8. DUROGESIC [Concomitant]
     Active Substance: FENTANYL
     Dosage: 25UG/HR 1X3D 1PLASTER
  9. MACROGOL [Concomitant]
     Active Substance: POLYETHYLENE GLYCOLS
     Dosage: 1-2 D1S
  10. LETROZOL [Concomitant]
     Active Substance: LETROZOLE
     Dosage: 2.5 MILLIGRAM, 1XD 1T
  11. LISINOPRIL/HYDROCHLOORTHIAZIDE [Concomitant]
     Active Substance: HYDROCHLOROTHIAZIDE\LISINOPRIL
     Dosage: 20 MILLIGRAM, QD
  12. DEXAMETHASONE. [Concomitant]
     Active Substance: DEXAMETHASONE
     Dosage: 1.5 MILLIGRAM, BID
  13. FENTANYL. [Concomitant]
     Active Substance: FENTANYL
     Dosage: 100 MICROGRAM, 1X PER 3D 1PLASTER
  14. DALTEPARINE SODIQUE [Concomitant]
     Active Substance: DALTEPARIN SODIUM
     Dosage: WWSP 2500IE=0,2ML (12.500IE/ML),
  15. XGEVA [Suspect]
     Active Substance: DENOSUMAB
     Dosage: 120 MILLIGRAM (70MG/ML FLACON 1.7ML), Q4WK
     Route: 058
  16. OXYCODON [Concomitant]
     Active Substance: OXYCODONE
     Dosage: 15 MILLIGRAM, 2XD 1T
  17. AMOXICILLINE [AMOXICILLIN] [Concomitant]
     Active Substance: AMOXICILLIN
     Dosage: 750 MILLIGRAM, 3XD 1T
  18. LISINOPRIL. [Concomitant]
     Active Substance: LISINOPRIL
     Dosage: 10 MILLIGRAM, QD
  19. XGEVA [Suspect]
     Active Substance: DENOSUMAB
     Dosage: 120 MILLIGRAM,INJLQD 70MG/ML FLACON 1,7ML
     Route: 058
  20. CETOMACROGOL [Concomitant]
     Active Substance: COSMETICS
     Dosage: WITH VASELIN 20%
  21. AMLODIPINE [Concomitant]
     Active Substance: AMLODIPINE BESYLATE
     Dosage: 5 MILLIGRAM, QD
  22. PREGABALIN. [Concomitant]
     Active Substance: PREGABALIN
     Dosage: 75 MILLIGRAM  2D1C. 2XD 3C
  23. FENTANYL. [Concomitant]
     Active Substance: FENTANYL
     Dosage: 50 MICROGRAM, QH, 1X PER 3D 1PLASTER
  24. XGEVA [Suspect]
     Active Substance: DENOSUMAB
     Indication: PROPHYLAXIS
     Dosage: 120 MILLIGRAM/1,7ML 1 INJ, Q4WK
     Route: 058
     Dates: start: 20190917
  25. OXYCODON [Concomitant]
     Active Substance: OXYCODONE
     Dosage: 15 MILLIGRAM, 2XD 1T
  26. OXYCODON [Concomitant]
     Active Substance: OXYCODONE
     Dosage: 10 MILLIGRAM, 2D1T, WHEN NEEDED 0-6XD 1C
  27. PANTOPRAZOLE [Concomitant]
     Active Substance: PANTOPRAZOLE
     Dosage: 40 MILLIGRAM, QD
  28. FENTANYL. [Concomitant]
     Active Substance: FENTANYL
     Dosage: 25 MICROGRAM, QH, 1X PER 3D 1PLASTER

REACTIONS (10)
  - Nausea [Not Recovered/Not Resolved]
  - Pain [Not Recovered/Not Resolved]
  - Erysipelas [Recovered/Resolved]
  - Tumour marker increased [Unknown]
  - Fatigue [Not Recovered/Not Resolved]
  - Hypertension [Recovered/Resolved]
  - Decreased appetite [Unknown]
  - Back pain [Recovered/Resolved]
  - Respiratory rate increased [Unknown]
  - Musculoskeletal discomfort [Unknown]

NARRATIVE: CASE EVENT DATE: 20191113
